FAERS Safety Report 8430115-2 (Version None)
Quarter: 2012Q2

REPORT INFORMATION
  Report Type: 
  Country: None (occurrence: None)
  Receive Date: 20120612
  Receipt Date: 20120608
  Transmission Date: 20120825
  Serious: Yes (Hospitalization, Other)
  Sender: FDA-Public Use
  Company Number: US-ROCHE-1075407

PATIENT
  Sex: Female
  Weight: 166.3 kg

DRUGS (3)
  1. ZELBORAF [Suspect]
     Indication: METASTATIC MALIGNANT MELANOMA
     Dosage: 4 TABS IN MORNING AND EVENING.
     Route: 048
     Dates: start: 20120530, end: 20120603
  2. DILTIAZEM [Concomitant]
     Indication: HYPERTENSION
     Route: 048
     Dates: start: 20110418
  3. LISINOPRIL [Concomitant]
     Indication: HYPERTENSION
     Route: 048
     Dates: start: 20110208

REACTIONS (2)
  - PANCREATITIS ACUTE [None]
  - LIPASE ABNORMAL [None]
